FAERS Safety Report 4347774-6 (Version None)
Quarter: 2004Q2

REPORT INFORMATION
  Report Type: 
  Country: None (occurrence: None)
  Receive Date: 20040422
  Receipt Date: 20040413
  Transmission Date: 20050107
  Serious: Yes (Hospitalization)
  Sender: FDA-Public Use
  Company Number: 04P-163-0257372-00

PATIENT
  Age: 59 Year
  Sex: Male
  Weight: 86.7 kg

DRUGS (12)
  1. ISOPTIN SR 240 MG (ISOPTIN SR) (VERAPAMIL) (VERAPMIL) [Suspect]
     Dosage: 240 MG, 2 IN 1 D, ORAL
     Route: 048
     Dates: start: 19950601
  2. RHIGF1/PLACEBO [Suspect]
     Indication: AMYOTROPHIC LATERAL SCLEROSIS
     Dosage: 2.17 MG, 2 IN 1 D, SUBCUTANEOUS
     Route: 058
     Dates: start: 20030904
  3. CETIRIZINE HCL [Concomitant]
  4. LEVOTHYROXINE SODIUM [Concomitant]
  5. FUROSEMIDE [Concomitant]
  6. POTASSIUM CHLORIDE [Concomitant]
  7. ALPRAZOLAM [Concomitant]
  8. ZETIA [Concomitant]
  9. SALBUTAMOL SULFATE [Concomitant]
  10. LACTULOSE [Concomitant]
  11. BUDESONIDE [Concomitant]
  12. IPRATROPIUM BROMIDE [Concomitant]

REACTIONS (9)
  - ANGINA PECTORIS [None]
  - ARTHRALGIA [None]
  - CHEST PAIN [None]
  - DYSPNOEA [None]
  - FALL [None]
  - OEDEMA [None]
  - OEDEMA PERIPHERAL [None]
  - RESPIRATORY DISTRESS [None]
  - SUPRAVENTRICULAR EXTRASYSTOLES [None]
